FAERS Safety Report 4534896-X (Version None)
Quarter: 2004Q4

REPORT INFORMATION
  Report Type: 
  Country: None (occurrence: None)
  Receive Date: 20041222
  Receipt Date: 20040713
  Transmission Date: 20050328
  Serious: No
  Sender: FDA-Public Use
  Company Number: US-BRISTOL-MYERS SQUIBB COMPANY-12639530

PATIENT
  Age: 79 Year
  Sex: Male
  Weight: 245 kg

DRUGS (7)
  1. PRAVACHOL [Suspect]
     Indication: BLOOD CHOLESTEROL INCREASED
     Route: 048
     Dates: start: 20031101
  2. CELEBREX [Concomitant]
  3. VITAMIN E [Concomitant]
  4. DIAZEPAM [Concomitant]
  5. ASPIRIN [Concomitant]
     Indication: PAIN
  6. OXYGEN [Concomitant]
     Indication: CLUSTER HEADACHE
  7. VERAPAMIL [Concomitant]

REACTIONS (2)
  - CHILLS [None]
  - PARAESTHESIA [None]
